FAERS Safety Report 5663121-1 (Version None)
Quarter: 2008Q1

REPORT INFORMATION
  Report Type: 
  Country: None (occurrence: None)
  Receive Date: 20080313
  Receipt Date: 20080311
  Transmission Date: 20080703
  Serious: Yes (Hospitalization)
  Sender: FDA-Public Use
  Company Number: B0510319A

PATIENT
  Age: 10 Year
  Sex: Female

DRUGS (4)
  1. RELENZA [Suspect]
     Indication: INFLUENZA
     Dosage: 10MG TWICE PER DAY
     Route: 055
     Dates: start: 20080226, end: 20080226
  2. ASVERIN [Concomitant]
     Route: 048
  3. SAWATENE [Concomitant]
     Route: 048
  4. CALONAL [Concomitant]

REACTIONS (1)
  - CONVULSION [None]
